FAERS Safety Report 21717667 (Version 3)
Quarter: 2022Q4

REPORT INFORMATION
  Report Type: Spontaneous
  Country: US (occurrence: US)
  Receive Date: 20221212
  Receipt Date: 20221219
  Transmission Date: 20230113
  Serious: No
  Sender: FDA-Public Use
  Company Number: US-GBT-014964

PATIENT
  Age: 51 Year
  Sex: Female

DRUGS (1)
  1. OXBRYTA [Suspect]
     Active Substance: VOXELOTOR
     Indication: Sickle cell disease
     Route: 048
     Dates: start: 20220715, end: 20220908

REACTIONS (7)
  - Sickle cell anaemia with crisis [Not Recovered/Not Resolved]
  - COVID-19 [Recovered/Resolved]
  - Diarrhoea [Recovering/Resolving]
  - Abdominal pain upper [Unknown]
  - Hepatic enzyme increased [Unknown]
  - Therapy cessation [Unknown]
  - Haemoglobin decreased [Unknown]

NARRATIVE: CASE EVENT DATE: 20220701
